FAERS Safety Report 9592516 (Version 1)
Quarter: 2013Q4

REPORT INFORMATION
  Report Type: Spontaneous
  Country: US (occurrence: None)
  Receive Date: 20131003
  Receipt Date: 20131003
  Transmission Date: 20140711
  Serious: Yes (Hospitalization)
  Sender: FDA-Public Use
  Company Number: None

PATIENT
  Age: 71 Year
  Sex: Male
  Weight: 118.2 kg

DRUGS (1)
  1. WARFARIN [Suspect]
     Indication: DEEP VEIN THROMBOSIS
     Route: 048
     Dates: start: 20130220, end: 20130626

REACTIONS (2)
  - Gastrointestinal haemorrhage [None]
  - Arteriovenous malformation [None]
